FAERS Safety Report 4732451-X (Version None)
Quarter: 2005Q3

REPORT INFORMATION
  Report Type: 
  Country: None (occurrence: None)
  Receive Date: 20050801
  Receipt Date: 20050714
  Transmission Date: 20060218
  Serious: Yes (Hospitalization)
  Sender: FDA-Public Use
  Company Number: DSA_26765_2005

PATIENT
  Age: 70 Year
  Sex: Female

DRUGS (5)
  1. VASOTEC RPD [Suspect]
     Dosage: DF PO
     Route: 048
  2. NORVASC [Concomitant]
  3. SYNTHROID [Concomitant]
  4. BENADRYL [Concomitant]
  5. TAGAMET [Concomitant]

REACTIONS (2)
  - ANGIONEUROTIC OEDEMA [None]
  - HYPERSENSITIVITY [None]
